FAERS Safety Report 5259944-3 (Version None)
Quarter: 2007Q1

REPORT INFORMATION
  Report Type: 
  Country: None (occurrence: None)
  Receive Date: 20070309
  Receipt Date: 20070228
  Transmission Date: 20070707
  Serious: Yes (Other)
  Sender: FDA-Public Use
  Company Number: MW-GLAXOSMITHKLINE-B0458477A

PATIENT
  Age: 36 Year
  Sex: Female

DRUGS (4)
  1. COMBIVIR [Suspect]
     Indication: ANTIVIRAL PROPHYLAXIS
     Dosage: 1TAB TWICE PER DAY
     Route: 048
     Dates: start: 20060718
  2. KALETRA [Suspect]
     Indication: ANTIVIRAL PROPHYLAXIS
     Dosage: 3CAP TWICE PER DAY
     Route: 048
     Dates: start: 20060718, end: 20061121
  3. COMBIVIR [Concomitant]
     Dosage: 1TAB TWICE PER DAY
     Route: 048
  4. NEVIRAPINE [Concomitant]
     Indication: ANTIVIRAL PROPHYLAXIS
     Route: 048

REACTIONS (4)
  - ABDOMINAL PAIN UPPER [None]
  - ALANINE AMINOTRANSFERASE [None]
  - HEPATITIS [None]
  - LIVER TENDERNESS [None]
